FAERS Safety Report 16824287 (Version 1)
Quarter: 2019Q3

REPORT INFORMATION
  Report Type: Spontaneous
  Country: TR (occurrence: TR)
  Receive Date: 20190918
  Receipt Date: 20190918
  Transmission Date: 20191005
  Serious: Yes (Other)
  Sender: FDA-Public Use
  Company Number: TR-ANIPHARMA-2019-TR-000042

PATIENT
  Age: 72 Year
  Sex: Male

DRUGS (3)
  1. BELOC [Concomitant]
     Dosage: 50 MG DAILY
     Route: 065
  2. CARDURA [Concomitant]
     Active Substance: DOXAZOSIN MESYLATE
     Dosage: TIME TO TIME
     Route: 065
  3. ATACAND [Suspect]
     Active Substance: CANDESARTAN CILEXETIL
     Indication: PRODUCT USED FOR UNKNOWN INDICATION
     Dosage: 16 MG DAILY
     Route: 048
     Dates: end: 20190827

REACTIONS (2)
  - Drug ineffective [Unknown]
  - Hypertension [Unknown]
